FAERS Safety Report 5701836-7 (Version None)
Quarter: 2008Q2

REPORT INFORMATION
  Report Type: 
  Country: None (occurrence: None)
  Receive Date: 20080411
  Receipt Date: 20080411
  Transmission Date: 20081010
  Serious: Yes (Other)
  Sender: FDA-Public Use
  Company Number: None

PATIENT
  Age: 2 Year
  Sex: Female
  Weight: 17.69 kg

DRUGS (2)
  1. HEPARIN LOCK-FLUSH [Suspect]
     Indication: OSTEOMYELITIS
     Dosage: HEPARIN FLUSH 100U/ML FLUSH WITH 5 ML IV TO PICC Q8 AFTER LAST SALINE FLUSH
     Route: 042
     Dates: start: 20080225, end: 20080304
  2. HEPARIN LOCK-FLUSH [Suspect]

REACTIONS (3)
  - NAUSEA [None]
  - PHARMACEUTICAL PRODUCT COMPLAINT [None]
  - VOMITING [None]
